FAERS Safety Report 8890087 (Version 1)
Quarter: 2012Q4

REPORT INFORMATION
  Report Type: Spontaneous
  Country: US (occurrence: None)
  Receive Date: 20121105
  Receipt Date: 20121105
  Transmission Date: 20130627
  Serious: Yes (Other)
  Sender: FDA-Public Use
  Company Number: None

PATIENT
  Age: 155 None
  Weight: 70.31 kg

DRUGS (7)
  1. ZOCOR [Suspect]
     Dosage: 20, 40, once daily po
     Route: 048
  2. PRAVASTATIN [Suspect]
     Dosage: Prvcr 80,40 once daily po
     Route: 048
  3. PRAVASTATIN [Suspect]
     Route: 048
  4. LIPITOR [Suspect]
     Dosage: ONCE DAILY PO
     Route: 048
  5. CRESTOR [Suspect]
     Dosage: Crestr 20 mg once daily po
     Route: 048
  6. CRESTOR [Suspect]
     Dosage: 10 ONCE DAILY PO
     Route: 048
  7. LESCOL [Suspect]
     Dosage: 180mg ONCE DAILY PO
     Route: 048

REACTIONS (5)
  - Insomnia [None]
  - Nightmare [None]
  - Sleep disorder [None]
  - Tachycardia paroxysmal [None]
  - Panic attack [None]
